FAERS Safety Report 9060062 (Version 1)
Quarter: 2013Q1

REPORT INFORMATION
  Report Type: Spontaneous
  Country: US (occurrence: None)
  Receive Date: 20130207
  Receipt Date: 20130207
  Transmission Date: 20140127
  Serious: Yes (Other)
  Sender: FDA-Public Use
  Company Number: None

PATIENT
  Age: 59 Year
  Sex: Male
  Weight: 8 kg

DRUGS (1)
  1. CIALIS 20 MG LILLY [Suspect]
     Indication: EJACULATION DISORDER
     Dosage: 1 DAILY PO
     Route: 048
     Dates: start: 20130201, end: 20130203

REACTIONS (4)
  - Product counterfeit [None]
  - Product quality issue [None]
  - Headache [None]
  - Drug ineffective [None]
